FAERS Safety Report 8508138-4 (Version None)
Quarter: 2012Q2

REPORT INFORMATION
  Report Type: 
  Country: None (occurrence: None)
  Receive Date: 20120405
  Receipt Date: 20090818
  Transmission Date: 20120825
  Serious: Yes (Other)
  Sender: FDA-Public Use
  Company Number: PHEH2009US09528

PATIENT
  Sex: Female

DRUGS (1)
  1. RECLAST [Suspect]
     Indication: OSTEOPOROSIS
     Dosage: 5 MG, INFUSION
     Dates: start: 20080628

REACTIONS (4)
  - PHARYNGEAL OEDEMA [None]
  - RASH [None]
  - SWELLING FACE [None]
  - URTICARIA [None]
